FAERS Safety Report 5045140-1 (Version None)
Quarter: 2006Q3

REPORT INFORMATION
  Report Type: 
  Country: None (occurrence: None)
  Receive Date: 20060705
  Receipt Date: 20060614
  Transmission Date: 20061208
  Serious: Yes (Death)
  Sender: FDA-Public Use
  Company Number: US_980807977

PATIENT
  Sex: Female

DRUGS (5)
  1. HUMULIN N [Suspect]
     Dosage: TRANSPLACENTAL
     Route: 064
  2. ILETIN [Suspect]
     Dosage: TRANSPLACENTAL
     Route: 064
  3. ILETIN [Suspect]
     Dosage: TRANSPLACENTAL
     Route: 064
  4. HUMULIN U [Suspect]
     Dosage: TRANSPLACENTAL
     Route: 064
  5. PRENATAL VITAMINS [Concomitant]

REACTIONS (6)
  - ABORTION SPONTANEOUS [None]
  - DRUG EXPOSURE DURING PREGNANCY [None]
  - HYPOGLYCAEMIA [None]
  - INTRA-UTERINE DEATH [None]
  - PREGNANCY [None]
  - TOOTH INFECTION [None]
